FAERS Safety Report 4663019-1 (Version None)
Quarter: 2005Q2

REPORT INFORMATION
  Report Type: 
  Country: None (occurrence: None)
  Receive Date: 20050513
  Receipt Date: 20050503
  Transmission Date: 20051028
  Serious: Yes (Other)
  Sender: FDA-Public Use
  Company Number: 200511219GDS

PATIENT
  Age: 80 Year
  Sex: Female

DRUGS (12)
  1. CIPROFLOXACIN [Suspect]
     Dosage: 750 MG, BID, ORAL
     Route: 048
  2. LEVOTHYROXINE SODIUM [Suspect]
     Indication: THYROXINE THERAPY
     Dosage: 125 + 200 UG, TOTAL DAILY
  3. DICLOXACILLIN [Concomitant]
  4. HEPARIN [Concomitant]
  5. ALFACALCIDIOL [Concomitant]
  6. PROPRANOLOL [Concomitant]
  7. RANITIDINE [Concomitant]
  8. FUROSEMIDE [Concomitant]
  9. METHENAMINE HIPPURATE [Concomitant]
  10. PARACETAMOL [Concomitant]
  11. MORPHINE [Concomitant]
  12. ONDANSETRON [Concomitant]

REACTIONS (10)
  - BLOOD THYROID STIMULATING HORMONE INCREASED [None]
  - DRUG INEFFECTIVE [None]
  - DRUG INTERACTION [None]
  - FATIGUE [None]
  - FEMUR FRACTURE [None]
  - OSTEOMYELITIS [None]
  - PATHOLOGICAL FRACTURE [None]
  - THYROID CANCER METASTATIC [None]
  - THYROXINE FREE DECREASED [None]
  - TRI-IODOTHYRONINE DECREASED [None]
